FAERS Safety Report 5932098-3 (Version None)
Quarter: 2008Q4

REPORT INFORMATION
  Report Type: 
  Country: None (occurrence: None)
  Receive Date: 20081027
  Receipt Date: 20081023
  Transmission Date: 20090506
  Serious: Yes (Other)
  Sender: FDA-Public Use
  Company Number: US-GILEAD-2008-0018616

PATIENT
  Sex: Female

DRUGS (12)
  1. LETAIRIS [Suspect]
     Indication: PULMONARY ARTERIAL HYPERTENSION
  2. CENTRUM SILVER [Concomitant]
  3. TOPROL ER [Concomitant]
  4. FOLIC ACID [Concomitant]
  5. LASIX [Concomitant]
  6. CALCIUM + D [Concomitant]
  7. COUMADIN [Concomitant]
  8. HYDROCODONE BITARTRATE [Concomitant]
  9. LORAZEPAM [Concomitant]
  10. ALENDRONATE SODIUM [Concomitant]
  11. METHOTREXATE [Concomitant]
  12. ORENCIA [Concomitant]

REACTIONS (2)
  - CARDIAC DISORDER [None]
  - SWELLING [None]
